FAERS Safety Report 12205486 (Version 1)
Quarter: 2016Q1

REPORT INFORMATION
  Report Type: Spontaneous
  Country: TR (occurrence: TR)
  Receive Date: 20160323
  Receipt Date: 20160323
  Transmission Date: 20160526
  Serious: Yes (Other)
  Sender: FDA-Public Use
  Company Number: TR-ABBVIE-16P-161-1589238-00

PATIENT
  Age: 14 Year
  Sex: Male

DRUGS (2)
  1. VALPROATE SODIUM. [Suspect]
     Active Substance: VALPROATE SODIUM
     Indication: EPILEPSY
     Route: 065
  2. LAMOTRIGINE. [Suspect]
     Active Substance: LAMOTRIGINE
     Indication: EPILEPSY
     Route: 065

REACTIONS (11)
  - Eosinophilia [Recovered/Resolved]
  - Periorbital oedema [Recovered/Resolved]
  - Pharyngeal erythema [Recovered/Resolved]
  - Drug reaction with eosinophilia and systemic symptoms [Recovered/Resolved]
  - Rash pruritic [Recovered/Resolved]
  - Pyrexia [Recovered/Resolved]
  - Purpura [Recovered/Resolved]
  - Eyelid oedema [Recovered/Resolved]
  - Drug hypersensitivity [Recovered/Resolved]
  - Rash maculo-papular [Recovered/Resolved]
  - Mucosal inflammation [Recovered/Resolved]
